FAERS Safety Report 9302704 (Version 1)
Quarter: 2013Q2

REPORT INFORMATION
  Report Type: Not Available
  Country: FR (occurrence: None)
  Receive Date: 20130516
  Receipt Date: 20130516
  Transmission Date: 20140414
  Serious: Yes (Disabling)
  Sender: FDA-Public Use
  Company Number: FK201301513

PATIENT
  Age: 43 Year
  Sex: Male

DRUGS (1)
  1. ROPIVACAINE HCL [Suspect]
     Indication: NERVE BLOCK
     Dosage: 300MG 1 IN 1 D INTRAVENOUS (NOT OTHERWISE SPECIFIED)
     Route: 042
     Dates: start: 20130109, end: 20130109

REACTIONS (5)
  - Paraesthesia [None]
  - Pain [None]
  - Neuropathy peripheral [None]
  - Sensorimotor disorder [None]
  - Neurotoxicity [None]
